FAERS Safety Report 25132355 (Version 2)
Quarter: 2025Q2

REPORT INFORMATION
  Report Type: Spontaneous
  Country: US (occurrence: US)
  Receive Date: 20250328
  Receipt Date: 20250507
  Transmission Date: 20250717
  Serious: No
  Sender: ROCHE
  Company Number: US-ROCHE-10000238849

PATIENT
  Age: 76 Year
  Sex: Female
  Weight: 65.77 kg

DRUGS (1)
  1. VABYSMO [Suspect]
     Active Substance: FARICIMAB-SVOA
     Indication: Neovascular age-related macular degeneration
     Dosage: LAST TREATMENT DATE: 06-MAR-20
     Route: 050
     Dates: start: 202409

REACTIONS (4)
  - Injection site pain [Recovered/Resolved]
  - Off label use [Unknown]
  - Kaleidoscope vision [Recovered/Resolved]
  - Vitreous floaters [Unknown]

NARRATIVE: CASE EVENT DATE: 20240901
